FAERS Safety Report 10139515 (Version 2)
Quarter: 2014Q2

REPORT INFORMATION
  Report Type: Spontaneous
  Country: UA (occurrence: UA)
  Receive Date: 20140429
  Receipt Date: 20140530
  Transmission Date: 20141212
  Serious: Yes (Other)
  Sender: FDA-Public Use
  Company Number: UA-ASTELLAS-2014EU004082

PATIENT
  Age: 4 Year
  Sex: Male
  Weight: 18 kg

DRUGS (1)
  1. PROTOPIC [Suspect]
     Indication: DERMATITIS ATOPIC
     Dosage: UNK UNK, TWICE DAILY
     Route: 061
     Dates: start: 20140225, end: 20140325

REACTIONS (2)
  - Application site discolouration [Not Recovered/Not Resolved]
  - Medication error [Unknown]
